FAERS Safety Report 20445676 (Version 1)
Quarter: 2022Q1

REPORT INFORMATION
  Report Type: Spontaneous
  Country: US (occurrence: None)
  Receive Date: 20220208
  Receipt Date: 20220208
  Transmission Date: 20220423
  Serious: Yes (Disabling)
  Sender: FDA-Public Use
  Company Number: None

PATIENT
  Age: 78 Year
  Sex: Female
  Weight: 65.25 kg

DRUGS (11)
  1. TAMSULOSIN HYDROCHLORIDE [Suspect]
     Active Substance: TAMSULOSIN HYDROCHLORIDE
     Indication: Nephrolithiasis
     Dosage: OTHER QUANTITY : 1 CAPSULE(S);?FREQUENCY : DAILY;?
     Route: 048
     Dates: start: 20220124, end: 20220127
  2. TAMOXIFEN [Concomitant]
     Active Substance: TAMOXIFEN
  3. GABAPENTIN [Concomitant]
     Active Substance: GABAPENTIN
  4. VITAMINS [Concomitant]
     Active Substance: VITAMINS
  5. SUPER VITAMIN B COMPLEX [Concomitant]
  6. VITAMIN C [Concomitant]
     Active Substance: ASCORBIC ACID
  7. OMEGA 3 [Concomitant]
     Active Substance: CAPSAICIN
  8. TURMEIC [Concomitant]
  9. IRON [Concomitant]
     Active Substance: IRON
  10. STOOL SOFTENER (DOCUSATE) [Concomitant]
     Active Substance: DOCUSATE
  11. PB8 PROBIOTIC [Concomitant]

REACTIONS (1)
  - Pruritus [None]

NARRATIVE: CASE EVENT DATE: 20220126
